FAERS Safety Report 5873933-7 (Version None)
Quarter: 2008Q3

REPORT INFORMATION
  Report Type: 
  Country: None (occurrence: None)
  Receive Date: 20080908
  Receipt Date: 20080902
  Transmission Date: 20090109
  Serious: Yes (Hospitalization)
  Sender: FDA-Public Use
  Company Number: US-AMGEN-US297231

PATIENT
  Sex: Female

DRUGS (6)
  1. AMG 655 [Suspect]
     Indication: NEOPLASM MALIGNANT
     Route: 042
     Dates: start: 20080724
  2. PANITUMUMAB [Suspect]
     Indication: COLORECTAL CANCER
     Route: 042
     Dates: start: 20080724
  3. LORTAB [Concomitant]
     Route: 048
  4. METHADONE HCL [Concomitant]
     Route: 048
  5. LASIX [Concomitant]
     Route: 048
  6. CELEXA [Concomitant]

REACTIONS (8)
  - CHILLS [None]
  - CONFUSIONAL STATE [None]
  - HAEMATOCRIT DECREASED [None]
  - HEADACHE [None]
  - HEART RATE INCREASED [None]
  - PAIN IN EXTREMITY [None]
  - PYREXIA [None]
  - WHITE BLOOD CELL COUNT DECREASED [None]
